FAERS Safety Report 4568589-X (Version None)
Quarter: 2005Q1

REPORT INFORMATION
  Report Type: 
  Country: None (occurrence: None)
  Receive Date: 20050202
  Receipt Date: 20050124
  Transmission Date: 20050727
  Serious: Yes (Hospitalization)
  Sender: FDA-Public Use
  Company Number: US-ABBOTT-05P-163-0287998-00

PATIENT
  Sex: Female
  Weight: 55.388 kg

DRUGS (3)
  1. TARKA [Suspect]
     Indication: BLOOD PRESSURE INCREASED
     Route: 048
     Dates: start: 20041222, end: 20041226
  2. ACETYLSALICYLIC ACID SRT [Concomitant]
     Indication: DRUG USE FOR UNKNOWN INDICATION
     Route: 048
  3. OCUVITE [Concomitant]
     Indication: DRUG USE FOR UNKNOWN INDICATION
     Route: 048

REACTIONS (5)
  - HEART RATE INCREASED [None]
  - HYPERSENSITIVITY [None]
  - PALPITATIONS [None]
  - PYREXIA [None]
  - RASH PRURITIC [None]
